FAERS Safety Report 8885469 (Version 2)
Quarter: 2012Q4

REPORT INFORMATION
  Report Type: 
  Country: US (occurrence: US)
  Receive Date: 20121101
  Receipt Date: 20121212
  Transmission Date: 20130627
  Serious: Yes (Hospitalization, Other)
  Sender: FDA-Public Use
  Company Number: US-ELI_LILLY_AND_COMPANY-US201210008973

PATIENT
  Age: 82 Year
  Sex: Male

DRUGS (3)
  1. HUMALOG LISPRO [Suspect]
     Indication: DIABETES MELLITUS
     Dosage: UNK, prn
  2. LANTUS [Concomitant]
  3. WARFARIN [Concomitant]

REACTIONS (2)
  - Cardiac failure congestive [Recovered/Resolved]
  - Gait disturbance [Not Recovered/Not Resolved]
